FAERS Safety Report 14316356 (Version 1)
Quarter: 2017Q4

REPORT INFORMATION
  Report Type: Spontaneous
  Country: US (occurrence: US)
  Receive Date: 20171222
  Receipt Date: 20171222
  Transmission Date: 20180321
  Serious: Yes (Other)
  Sender: FDA-Public Use
  Company Number: US-ENDO PHARMACEUTICALS INC-2017-009031

PATIENT
  Age: 67 Year
  Sex: Female

DRUGS (2)
  1. ASPIRIN. [Concomitant]
     Active Substance: ASPIRIN
     Indication: HYPERCOAGULATION
     Dosage: UNK UNK, UNKNOWN
     Route: 065
  2. HYDROXYUREA. [Suspect]
     Active Substance: HYDROXYUREA
     Indication: POLYCYTHAEMIA VERA
     Dosage: 1 DF, BID
     Route: 048
     Dates: start: 20170516, end: 20171001

REACTIONS (6)
  - Back injury [Unknown]
  - Nightmare [Not Recovered/Not Resolved]
  - Fall [Unknown]
  - Nail discolouration [Unknown]
  - Off label use [Unknown]
  - Eye contusion [Unknown]

NARRATIVE: CASE EVENT DATE: 20170516
